FAERS Safety Report 5950855-4 (Version None)
Quarter: 2008Q4

REPORT INFORMATION
  Report Type: 
  Country: None (occurrence: None)
  Receive Date: 20081110
  Receipt Date: 20081103
  Transmission Date: 20090506
  Serious: Yes (Other)
  Sender: FDA-Public Use
  Company Number: GXKR2008DE10366

PATIENT
  Sex: Male

DRUGS (2)
  1. SULFAMETHOXAZOLE AND TRIMETHOPRIM [Suspect]
  2. MYFORTIC [Suspect]

REACTIONS (1)
  - AUTOIMMUNE THROMBOCYTOPENIA [None]
